FAERS Safety Report 17810319 (Version 1)
Quarter: 2020Q2

REPORT INFORMATION
  Report Type: Spontaneous
  Country: US (occurrence: US)
  Receive Date: 20200520
  Receipt Date: 20200520
  Transmission Date: 20200714
  Serious: No
  Sender: FDA-Public Use
  Company Number: US-BAUSCH-BL-2020-012015

PATIENT
  Age: 67 Year
  Sex: Female

DRUGS (9)
  1. METOPROLOL ER [Concomitant]
     Active Substance: METOPROLOL SUCCINATE
     Indication: PRODUCT USED FOR UNKNOWN INDICATION
  2. KEFLEX [Suspect]
     Active Substance: CEPHALEXIN
     Indication: EYE INFECTION
     Route: 048
     Dates: start: 202004
  3. OMEGA 3 FISH OIL [Concomitant]
     Active Substance: FISH OIL\OMEGA-3 FATTY ACIDS
     Indication: PRODUCT USED FOR UNKNOWN INDICATION
  4. SIMVASTATIN. [Concomitant]
     Active Substance: SIMVASTATIN
     Indication: PRODUCT USED FOR UNKNOWN INDICATION
  5. VITAMIN E [Concomitant]
     Active Substance: .ALPHA.-TOCOPHEROL
     Indication: PRODUCT USED FOR UNKNOWN INDICATION
  6. MELOXICAM. [Concomitant]
     Active Substance: MELOXICAM
     Indication: PRODUCT USED FOR UNKNOWN INDICATION
  7. TELMISARTAN HCT [Concomitant]
     Indication: PRODUCT USED FOR UNKNOWN INDICATION
  8. NEOMYCIN AND POLYMYXIN B SULFATES AND DEXAMETHASONE OPHTHALMIC SUSP [Suspect]
     Active Substance: DEXAMETHASONE\NEOMYCIN\POLYMYXIN B SULFATE
     Indication: EYE INFECTION
     Dosage: ONE DROP IN BOTH EYES
     Route: 047
     Dates: start: 20200416
  9. OFLOXACIN OPHTHALMIC [Suspect]
     Active Substance: OFLOXACIN
     Indication: EYE INFECTION
     Route: 047
     Dates: start: 202004

REACTIONS (2)
  - Eye discharge [Unknown]
  - Ocular discomfort [Unknown]

NARRATIVE: CASE EVENT DATE: 202004
